FAERS Safety Report 4790387-2 (Version None)
Quarter: 2005Q4

REPORT INFORMATION
  Report Type: 
  Country: None (occurrence: None)
  Receive Date: 20051005
  Receipt Date: 20050922
  Transmission Date: 20060501
  Serious: Yes (Death)
  Sender: FDA-Public Use
  Company Number: 2005133628

PATIENT
  Age: 21 Year
  Sex: Male

DRUGS (1)
  1. GEODON [Suspect]
     Indication: PSYCHOTIC DISORDER
     Dates: start: 20050920

REACTIONS (3)
  - AMPHETAMINES POSITIVE [None]
  - FATIGUE [None]
  - MALAISE [None]
